FAERS Safety Report 9052575 (Version 2)
Quarter: 2013Q1

REPORT INFORMATION
  Report Type: Spontaneous
  Country: FR (occurrence: FR)
  Receive Date: 20130207
  Receipt Date: 20130219
  Transmission Date: 20140127
  Serious: Yes (Other)
  Sender: FDA-Public Use
  Company Number: FR-BRISTOL-MYERS SQUIBB COMPANY-17320300

PATIENT
  Age: 24 Year
  Sex: Male

DRUGS (3)
  1. ABILIFY [Suspect]
     Indication: PSYCHOTIC DISORDER
     Route: 048
     Dates: start: 201205
  2. ABILIFY [Suspect]
     Indication: MENTAL RETARDATION
     Route: 048
     Dates: start: 201205
  3. ABILIFY [Suspect]
     Indication: ABNORMAL BEHAVIOUR
     Route: 048
     Dates: start: 201205

REACTIONS (2)
  - Lung disorder [Recovered/Resolved]
  - Pulmonary embolism [Recovered/Resolved]
